FAERS Safety Report 7549625-5 (Version None)
Quarter: 2011Q2

REPORT INFORMATION
  Report Type: 
  Country: None (occurrence: None)
  Receive Date: 20110615
  Receipt Date: 20110610
  Transmission Date: 20111010
  Serious: Yes (Death)
  Sender: FDA-Public Use
  Company Number: GB-GILEAD-2011-0040086

PATIENT
  Age: 82 Year
  Sex: Male

DRUGS (12)
  1. NITROGLYCERIN [Concomitant]
  2. FUROSEMIDE [Concomitant]
  3. ACETAMINOPHEN [Concomitant]
  4. ASPIRIN [Concomitant]
  5. CLOPIDOGREL [Concomitant]
  6. RANITIDINE [Concomitant]
  7. ISOSORBIDE MONONITRATE [Concomitant]
  8. RANEXA [Suspect]
     Route: 048
     Dates: start: 20101001
  9. VALSARTAN [Concomitant]
  10. SIMVASTATIN [Concomitant]
  11. NICORANDIL [Concomitant]
  12. AMLODIPINE [Concomitant]

REACTIONS (1)
  - DEATH [None]
